FAERS Safety Report 4614683-4 (Version None)
Quarter: 2005Q2

REPORT INFORMATION
  Report Type: 
  Country: None (occurrence: None)
  Receive Date: 20050311
  Receipt Date: 20050120
  Transmission Date: 20051028
  Serious: No
  Sender: FDA-Public Use
  Company Number: 2005-BP-01024BP

PATIENT
  Sex: Female

DRUGS (11)
  1. SPIRIVA [Suspect]
     Indication: ASTHMA
     Dosage: 18 MCG (18 MCG), IH
     Route: 055
     Dates: start: 20040901
  2. SPIRIVA [Suspect]
     Indication: CHRONIC OBSTRUCTIVE PULMONARY DISEASE
     Dosage: 18 MCG (18 MCG), IH
     Route: 055
     Dates: start: 20040901
  3. SPIRIVA [Suspect]
  4. CAPTOPRIL [Concomitant]
  5. SINGULAIR (MONTELUKAST) [Concomitant]
  6. LIPITOR [Concomitant]
  7. CORAAD [Concomitant]
  8. VOSPIRE [Concomitant]
  9. ALBUTEROL [Concomitant]
  10. ADVAIR DISKUS 100/50 [Concomitant]
  11. ASTALIN [Concomitant]

REACTIONS (2)
  - DYSPNOEA [None]
  - OBSTRUCTIVE AIRWAYS DISORDER [None]
